FAERS Safety Report 18517149 (Version 3)
Quarter: 2021Q1

REPORT INFORMATION
  Report Type: Report from Study
  Country: US (occurrence: US)
  Receive Date: 20201118
  Receipt Date: 20210330
  Transmission Date: 20210419
  Serious: Yes (Hospitalization, Other)
  Sender: FDA-Public Use
  Company Number: US-SHIRE-US202019753

PATIENT
  Sex: Female

DRUGS (1)
  1. HUMAN NORMAL IMMUNOGLOBULIN; LIQUID [Suspect]
     Active Substance: HUMAN IMMUNOGLOBULIN G
     Indication: HYPOGAMMAGLOBULINAEMIA
     Dosage: UNK
     Route: 042

REACTIONS (9)
  - Myasthenia gravis [Unknown]
  - Muscle spasms [Unknown]
  - Pain [Unknown]
  - Device related infection [Unknown]
  - Restless legs syndrome [Unknown]
  - Illness [Unknown]
  - Rash [Unknown]
  - Condition aggravated [Unknown]
  - Autoimmune disorder [Unknown]
